FAERS Safety Report 9393493 (Version 1)
Quarter: 2013Q3

REPORT INFORMATION
  Report Type: Spontaneous
  Country: US (occurrence: None)
  Receive Date: 20130709
  Receipt Date: 20130709
  Transmission Date: 20140515
  Serious: Yes (Other)
  Sender: FDA-Public Use
  Company Number: None

PATIENT
  Age: 76 Year
  Sex: Female
  Weight: 46.27 kg

DRUGS (4)
  1. AZOR [Suspect]
     Indication: HYPERTENSION
     Route: 048
     Dates: start: 20120207, end: 20130424
  2. CELEXA [Concomitant]
  3. SONATA [Concomitant]
  4. REGLAN [Concomitant]

REACTIONS (2)
  - Diarrhoea [None]
  - Weight decreased [None]
